FAERS Safety Report 17669336 (Version 3)
Quarter: 2020Q2

REPORT INFORMATION
  Report Type: Spontaneous
  Country: US (occurrence: US)
  Receive Date: 20200415
  Receipt Date: 20200506
  Transmission Date: 20200713
  Serious: Yes (Congenital Anomaly, Other)
  Sender: FDA-Public Use
  Company Number: US-LUPIN PHARMACEUTICALS INC.-2020-01666

PATIENT
  Sex: Female

DRUGS (1)
  1. LEVONORGESTREL. [Suspect]
     Active Substance: LEVONORGESTREL
     Indication: CONTRACEPTION
     Dosage: UNK, INTRAUTERINE DEVICE
     Route: 064

REACTIONS (4)
  - Virilism [Unknown]
  - Congenital labia pudendi adhesions [Unknown]
  - Foetal exposure during pregnancy [Unknown]
  - Persistent urogenital sinus [Unknown]
